FAERS Safety Report 20319489 (Version 1)
Quarter: 2022Q1

REPORT INFORMATION
  Report Type: Spontaneous
  Country: US (occurrence: US)
  Receive Date: 20220110
  Receipt Date: 20220110
  Transmission Date: 20220423
  Serious: No
  Sender: FDA-Public Use
  Company Number: US-BIOVITRUM-2022US00291

PATIENT
  Sex: Male
  Weight: 9 kg

DRUGS (1)
  1. DOPTELET [Suspect]
     Active Substance: AVATROMBOPAG MALEATE
     Indication: Immune thrombocytopenia
     Dosage: RESTART FREQUENCY : TWICE WEEKLY ON UNKNOWN DATE.
     Route: 048
     Dates: start: 202007

REACTIONS (2)
  - COVID-19 [Unknown]
  - Platelet count decreased [Unknown]
